FAERS Safety Report 7817764-7 (Version None)
Quarter: 2011Q4

REPORT INFORMATION
  Report Type: 
  Country: None (occurrence: None)
  Receive Date: 20111017
  Receipt Date: 20111006
  Transmission Date: 20120403
  Serious: Yes (Hospitalization)
  Sender: FDA-Public Use
  Company Number: DE-JNJFOC-20110701253

PATIENT
  Sex: Male

DRUGS (5)
  1. TRAMADOL HCL [Concomitant]
     Route: 048
  2. ABIRATERONE ACETATE [Suspect]
     Route: 048
  3. ABIRATERONE ACETATE [Suspect]
     Indication: PROSTATE CANCER METASTATIC
     Route: 048
     Dates: start: 20110512, end: 20110701
  4. FIRMAGON [Concomitant]
     Route: 058
  5. ZOLEDRONIC ACID [Concomitant]
     Route: 042

REACTIONS (2)
  - PULMONARY OEDEMA [None]
  - LONG QT SYNDROME [None]
